FAERS Safety Report 12772275 (Version 2)
Quarter: 2016Q4

REPORT INFORMATION
  Report Type: Spontaneous
  Country: SK (occurrence: SK)
  Receive Date: 20160922
  Receipt Date: 20161110
  Transmission Date: 20170207
  Serious: Yes (Death, Other)
  Sender: FDA-Public Use
  Company Number: SK-ARIAD PHARMACEUTICALS, INC-2016SK006992

PATIENT
  Age: 38 Year
  Sex: Female
  Weight: 58.96 kg

DRUGS (3)
  1. ICLUSIG [Suspect]
     Active Substance: PONATINIB
     Indication: BLAST CRISIS IN MYELOGENOUS LEUKAEMIA
     Dosage: 45 MG, QD
     Route: 048
     Dates: start: 20150806
  2. ICLUSIG [Suspect]
     Active Substance: PONATINIB
     Dosage: 30 MG, QD
     Route: 048
  3. ICLUSIG [Suspect]
     Active Substance: PONATINIB
     Dosage: 45 MG, QD
     Route: 048
     Dates: end: 20160223

REACTIONS (5)
  - Platelet count decreased [Unknown]
  - Neoplasm progression [Fatal]
  - Hypertension [Not Recovered/Not Resolved]
  - White blood cell count decreased [Unknown]
  - Myeloblast count decreased [Unknown]

NARRATIVE: CASE EVENT DATE: 2015
